FAERS Safety Report 9667907 (Version 1)
Quarter: 2013Q4

REPORT INFORMATION
  Report Type: Report from Study
  Country: UG (occurrence: UG)
  Receive Date: 20131104
  Receipt Date: 20131104
  Transmission Date: 20140711
  Serious: Yes (Death, Life-Threatening, Hospitalization)
  Sender: FDA-Public Use
  Company Number: UG-009507513-1311UGA000967

PATIENT
  Age: 44 Year
  Sex: Male

DRUGS (7)
  1. EFAVIRENZ [Suspect]
     Indication: HIV INFECTION
     Dosage: UNK
     Dates: start: 20130902, end: 201310
  2. RALTEGRAVIR POTASSIUM [Suspect]
     Indication: HIV INFECTION
     Dosage: UNK
     Route: 048
     Dates: start: 20130902, end: 201310
  3. EMTRICITABINE [Suspect]
     Indication: HIV INFECTION
     Dosage: UNK
     Dates: start: 20130902, end: 201310
  4. TENOFOVIR [Suspect]
     Indication: HIV INFECTION
     Dosage: UNK
     Dates: start: 20130902, end: 201310
  5. CLOTRIMAZOLE [Suspect]
     Dosage: UNK
     Dates: start: 20130829, end: 201310
  6. AMOXICILLIN [Concomitant]
     Dosage: UNK
     Dates: start: 20130829, end: 20130904
  7. ERYTHROMYCIN [Concomitant]
     Dosage: UNK
     Dates: start: 20130829, end: 20130904

REACTIONS (3)
  - Death [Fatal]
  - Bronchopneumonia [Unknown]
  - Cryptosporidiosis infection [Unknown]
